FAERS Safety Report 15333207 (Version 2)
Quarter: 2018Q3

REPORT INFORMATION
  Report Type: Report from Study
  Country: None (occurrence: IL)
  Receive Date: 20180830
  Receipt Date: 20180918
  Transmission Date: 20181010
  Serious: Yes (Hospitalization)
  Sender: FDA-Public Use
  Company Number: IL-ABBVIE-18S-082-2468829-00

PATIENT
  Age: 70 Year
  Sex: Male

DRUGS (1)
  1. DUODOPA [Suspect]
     Active Substance: CARBIDOPA\LEVODOPA
     Indication: PARKINSON^S DISEASE
     Dosage: CURRENT MORNING DOSE? 15 ML, CURRENT FIXED RATE? 3 ML/ HOUR, CURRENT EXTRA DOSE? 2 ML
     Route: 050
     Dates: start: 20170109

REACTIONS (6)
  - Dyskinesia [Unknown]
  - Road traffic accident [Unknown]
  - Balance disorder [Unknown]
  - Facial bones fracture [Unknown]
  - Contusion [Unknown]
  - Fall [Unknown]

NARRATIVE: CASE EVENT DATE: 2018
